FAERS Safety Report 9633346 (Version 2)
Quarter: 2013Q4

REPORT INFORMATION
  Report Type: Spontaneous
  Country: US (occurrence: US)
  Receive Date: 20131021
  Receipt Date: 20131125
  Transmission Date: 20140711
  Serious: Yes (Death)
  Sender: FDA-Public Use
  Company Number: US-CELGENEUS-163-21660-13103129

PATIENT
  Sex: Female

DRUGS (1)
  1. ABRAXANE [Suspect]
     Indication: ADENOID CYSTIC CARCINOMA
     Route: 013
     Dates: start: 20130610, end: 20130610

REACTIONS (1)
  - Malaise [Fatal]
